FAERS Safety Report 8836079 (Version 1)
Quarter: 2012Q4

REPORT INFORMATION
  Report Type: 
  Country: IN (occurrence: IN)
  Receive Date: 20121011
  Receipt Date: 20121011
  Transmission Date: 20130627
  Serious: Yes (Death, Hospitalization)
  Sender: FDA-Public Use
  Company Number: PHHY2012IN090083

PATIENT
  Sex: Male

DRUGS (2)
  1. SEBIVO [Suspect]
     Indication: HEPATITIS
     Dosage: 600 mg, UNK
     Dates: start: 20110926
  2. TRIVET [Concomitant]
     Indication: DIABETES MELLITUS

REACTIONS (2)
  - Liver disorder [Fatal]
  - Jaundice [Fatal]
